FAERS Safety Report 9016360 (Version 2)
Quarter: 2013Q4

REPORT INFORMATION
  Report Type: Report from Study
  Country: US (occurrence: US)
  Receive Date: 20130116
  Receipt Date: 20131223
  Transmission Date: 20140711
  Serious: Yes (Congenital Anomaly)
  Sender: FDA-Public Use
  Company Number: US-ROCHE-1179845

PATIENT
  Sex: Male

DRUGS (2)
  1. OMALIZUMAB [Suspect]
     Indication: PRODUCT USED FOR UNKNOWN INDICATION
     Route: 064
  2. OMALIZUMAB [Suspect]
     Dosage: DATE OF LAST DOSE PRIOR TO EVENT: 13/FEB/2007
     Route: 064
     Dates: start: 20070213

REACTIONS (2)
  - Amblyopia [Not Recovered/Not Resolved]
  - Maternal exposure timing unspecified [Unknown]
